FAERS Safety Report 11496273 (Version 1)
Quarter: 2015Q3

REPORT INFORMATION
  Report Type: Spontaneous
  Country: AU (occurrence: GB)
  Receive Date: 20150911
  Receipt Date: 20150911
  Transmission Date: 20151125
  Serious: Yes (Other)
  Sender: FDA-Public Use
  Company Number: AU-PERRIGO-15AU009075

PATIENT
  Age: 42 Year
  Sex: Male

DRUGS (3)
  1. BETAMETHASONE. [Suspect]
     Active Substance: BETAMETHASONE
     Indication: DERMATITIS ATOPIC
     Dosage: DAILY TO TWICE WEEKLY
     Route: 061
  2. BETAMETHASONE W/SALICYLIC ACID [Suspect]
     Active Substance: BETAMETHASONE\SALICYLIC ACID
     Indication: DERMATITIS ATOPIC
     Dosage: DAILY TO TWICE WEEKLY
     Route: 061
  3. HYDROCORTISONE 1% [Suspect]
     Active Substance: HYDROCORTISONE
     Indication: DERMATITIS ATOPIC
     Dosage: DAILY TO TWICE WEEKLY
     Route: 061

REACTIONS (1)
  - Glaucoma [Recovering/Resolving]
